FAERS Safety Report 4954766-2 (Version None)
Quarter: 2006Q1

REPORT INFORMATION
  Report Type: 
  Country: None (occurrence: None)
  Receive Date: 20060322
  Receipt Date: 20060307
  Transmission Date: 20060701
  Serious: Yes (Other)
  Sender: FDA-Public Use
  Company Number: DE200512001438

PATIENT
  Sex: Female

DRUGS (2)
  1. CYMBALTA [Suspect]
     Indication: DEPRESSION
     Dosage: 60 MG, EACH EVENING, ORAL
     Route: 048
     Dates: start: 20050301, end: 20051201
  2. TRIMIPRAMINE MALEATE [Concomitant]

REACTIONS (1)
  - BLOOD CREATININE INCREASED [None]
